FAERS Safety Report 8642835 (Version 3)
Quarter: 2013Q2

REPORT INFORMATION
  Report Type: Report from Study
  Country: CA (occurrence: CA)
  Receive Date: 20120629
  Receipt Date: 20130517
  Transmission Date: 20140414
  Serious: Yes (Other)
  Sender: FDA-Public Use
  Company Number: PHHY2012CA037955

PATIENT
  Age: 64 Year
  Sex: Female

DRUGS (2)
  1. ACLASTA [Suspect]
     Indication: OSTEOPOROSIS
     Dosage: UNK
     Route: 042
     Dates: start: 20091007
  2. ACLASTA [Suspect]
     Dosage: UNK
     Route: 042
     Dates: start: 20120501

REACTIONS (3)
  - Cataract [Unknown]
  - Visual acuity reduced [Unknown]
  - Blood cholesterol increased [Unknown]
